FAERS Safety Report 14149923 (Version 5)
Quarter: 2017Q4

REPORT INFORMATION
  Report Type: Spontaneous
  Country: US (occurrence: US)
  Receive Date: 20171101
  Receipt Date: 20171211
  Transmission Date: 20180321
  Serious: Yes (Other)
  Sender: FDA-Public Use
  Company Number: US-PFIZER INC-2017468297

PATIENT
  Age: 70 Year
  Sex: Female
  Weight: 71.2 kg

DRUGS (26)
  1. ZOFRAN [Concomitant]
     Active Substance: ONDANSETRON HYDROCHLORIDE
     Dosage: 8 MG, THREE TIMES A DAY BEFORE MEALS
     Route: 048
  2. SUTENT [Suspect]
     Active Substance: SUNITINIB MALATE
     Indication: METASTATIC RENAL CELL CARCINOMA
     Dosage: 50 MG, CYCLIC (28 DAYS ON/14 DAYS OFF)
     Route: 048
     Dates: start: 20170928, end: 20171031
  3. SUTENT [Suspect]
     Active Substance: SUNITINIB MALATE
     Dosage: 50 MG, CYCLIC, (28 DAYS ON/14 DAYS OFF)
     Dates: start: 20171011, end: 20171031
  4. GABAPENTIN. [Concomitant]
     Active Substance: GABAPENTIN
     Dosage: UNK
  5. MAGNESIUM [Concomitant]
     Active Substance: MAGNESIUM
     Dosage: 200 MG, UNK
     Route: 048
  6. NITRO [Concomitant]
     Active Substance: NITROGLYCERIN
     Dosage: UNK
  7. HUMALOG [Concomitant]
     Active Substance: INSULIN LISPRO
     Dosage: UNK
  8. METOPROLOL TARTRATE. [Concomitant]
     Active Substance: METOPROLOL TARTRATE
     Dosage: 25 MG, TWICE A DAY
     Route: 048
  9. AMLODIPINE [Concomitant]
     Active Substance: AMLODIPINE BESYLATE
     Dosage: UNK
  10. CRESTOR [Concomitant]
     Active Substance: ROSUVASTATIN CALCIUM
     Dosage: 20 MG, EVERY DAY
     Route: 048
  11. VITAMIN D [Concomitant]
     Active Substance: CHOLECALCIFEROL
     Dosage: UNK
  12. TORSEMIDE. [Concomitant]
     Active Substance: TORSEMIDE
     Dosage: 20 MG, EVERY DAY
     Route: 048
  13. MACRODANTIN [Concomitant]
     Active Substance: NITROFURANTOIN
     Dosage: 100 MG, EVERY 6 HOURS FOR 7 DAYS
     Route: 048
  14. PREVNAR 13 [Concomitant]
     Active Substance: PNEUMOCOCCAL 13-VALENT CONJUGATE VACCINE
     Indication: IMMUNISATION
     Dosage: 0.5ML, UNK
     Route: 030
  15. POTASSIUM [Concomitant]
     Active Substance: POTASSIUM
     Dosage: UNK
  16. TOUJEO [Concomitant]
     Active Substance: INSULIN GLARGINE
     Dosage: UNK
  17. TAMOXIFEN [Concomitant]
     Active Substance: TAMOXIFEN
     Dosage: UNK
  18. BACTRIM DS [Concomitant]
     Active Substance: SULFAMETHOXAZOLE\TRIMETHOPRIM
     Dosage: 1 TABLET (DF), EVERY 12 HOURS
     Route: 048
  19. FLUZONE [Concomitant]
     Active Substance: INFLUENZA A VIRUS A/CALIFORNIA/7/2009 X-179A (H1N1) ANTIGEN (FORMALDEHYDE INACTIVATED)\INFLUENZA A VIRUS A/VICTORIA/210/2009 X-187 (H3N2) ANTIGEN (FORMALDEHYDE INACTIVATED)\INFLUENZA B VIRUS B/BRISBANE/60/2008 ANTIGEN (FORMALDEHYDE INACTIVATED)
     Dosage: 0.5 ML, UNK (HIGH DOSE)
     Route: 030
  20. NITRO-DUR [Concomitant]
     Active Substance: NITROGLYCERIN
     Dosage: 1 PATCH (DF), EVERY DAY
     Route: 062
  21. CYMBALTA [Concomitant]
     Active Substance: DULOXETINE HYDROCHLORIDE
     Dosage: 60 MG, EVERY DAY
     Route: 048
  22. METOPROLOL. [Concomitant]
     Active Substance: METOPROLOL
     Dosage: UNK
  23. PROTONIX [Concomitant]
     Active Substance: PANTOPRAZOLE SODIUM
     Dosage: 40 MG, EVERY DAY
     Route: 048
  24. PERCOCET [Concomitant]
     Active Substance: ACETAMINOPHEN\OXYCODONE HYDROCHLORIDE
     Dosage: 1 TABLET (DF), EVERY 6 HOURS
     Route: 048
  25. KEPPRA [Concomitant]
     Active Substance: LEVETIRACETAM
     Dosage: 500 MG, TWICE A DAY
     Route: 048
  26. ISOSORBIDE. [Concomitant]
     Active Substance: ISOSORBIDE
     Dosage: UNK

REACTIONS (15)
  - Urinary tract infection [Unknown]
  - Malaise [Unknown]
  - Nausea [Unknown]
  - Asthenia [Unknown]
  - Diabetes mellitus [Unknown]
  - Arteriosclerosis [Unknown]
  - Weight decreased [Unknown]
  - Fall [Unknown]
  - Diarrhoea [Unknown]
  - Jaundice [Unknown]
  - Neoplasm progression [Unknown]
  - Pain [Unknown]
  - Blood glucose decreased [Unknown]
  - Fatigue [Unknown]
  - Vomiting [Unknown]

NARRATIVE: CASE EVENT DATE: 2017
